FAERS Safety Report 5140511-7 (Version None)
Quarter: 2006Q4

REPORT INFORMATION
  Report Type: 
  Country: None (occurrence: None)
  Receive Date: 20061025
  Receipt Date: 20061012
  Transmission Date: 20070319
  Serious: Yes (Other)
  Sender: FDA-Public Use
  Company Number: 2006125290

PATIENT
  Age: 53 Year
  Sex: Female
  Weight: 86.637 kg

DRUGS (24)
  1. GEODON [Suspect]
     Indication: ATTENTION DEFICIT/HYPERACTIVITY DISORDER
     Dosage: 160 MG (80 MG, 2 IN 1 D)
     Dates: start: 20060101
  2. GEODON [Suspect]
     Indication: BIPOLAR II DISORDER
     Dosage: 160 MG (80 MG, 2 IN 1 D)
     Dates: start: 20060101
  3. GEODON [Suspect]
     Indication: NARCOLEPSY
     Dosage: 160 MG (80 MG, 2 IN 1 D)
     Dates: start: 20060101
  4. GEODON [Suspect]
     Indication: OBSESSIVE-COMPULSIVE DISORDER
     Dosage: 160 MG (80 MG, 2 IN 1 D)
     Dates: start: 20060101
  5. RISPERDAL [Suspect]
     Indication: ATTENTION DEFICIT/HYPERACTIVITY DISORDER
     Dosage: (2 MG)
     Dates: end: 20060101
  6. RISPERDAL [Suspect]
     Indication: BIPOLAR II DISORDER
     Dosage: (2 MG)
     Dates: end: 20060101
  7. RISPERDAL [Suspect]
     Indication: NARCOLEPSY
     Dosage: (2 MG)
     Dates: end: 20060101
  8. RISPERDAL [Suspect]
     Indication: OBSESSIVE-COMPULSIVE DISORDER
     Dosage: (2 MG)
     Dates: end: 20060101
  9. WELLBUTRIN [Concomitant]
  10. TRAZODONE HCL [Concomitant]
  11. EFFEXOR [Concomitant]
  12. XANAX [Concomitant]
  13. LEVOTHYROXINE SODIUM [Concomitant]
  14. RITALIN [Concomitant]
  15. PREMPRO [Concomitant]
  16. ALBUTEROL [Concomitant]
  17. NASACORT [Concomitant]
  18. LOPROX (CICLOPIROX OLAMINE) [Concomitant]
  19. FLUOCINONIDE [Concomitant]
  20. XOPENEX [Concomitant]
  21. VALTREX [Concomitant]
  22. LYRICA [Concomitant]
  23. RETIN A (TRETINOIN) [Concomitant]
  24. NEXIUM [Concomitant]

REACTIONS (2)
  - GASTRIC BYPASS [None]
  - MANIA [None]
